FAERS Safety Report 14177860 (Version 2)
Quarter: 2017Q4

REPORT INFORMATION
  Report Type: Report from Study
  Country: AR (occurrence: AR)
  Receive Date: 20171110
  Receipt Date: 20171121
  Transmission Date: 20180321
  Serious: Yes (Other)
  Sender: FDA-Public Use
  Company Number: PHHY2017AR164578

PATIENT
  Sex: Female

DRUGS (3)
  1. RISPERIDONE. [Concomitant]
     Active Substance: RISPERIDONE
     Indication: SLEEP DISORDER
     Dosage: A QUARTER OF TABLET
     Route: 065
     Dates: start: 2016
  2. GILENYA [Suspect]
     Active Substance: FINGOLIMOD HYDROCHLORIDE
     Indication: MULTIPLE SCLEROSIS
     Dosage: 0.5 MG, QD
     Route: 048
     Dates: start: 20131126
  3. SERTRALINE [Concomitant]
     Active Substance: SERTRALINE HYDROCHLORIDE
     Indication: PRODUCT USED FOR UNKNOWN INDICATION
     Dosage: 1 DF, QD
     Route: 065
     Dates: start: 2016

REACTIONS (9)
  - Mean cell volume increased [Unknown]
  - Stress [Unknown]
  - Red blood cell count decreased [Unknown]
  - Breast mass [Unknown]
  - Gaze palsy [Not Recovered/Not Resolved]
  - Breast cyst [Unknown]
  - Visual impairment [Not Recovered/Not Resolved]
  - Concomitant disease aggravated [Unknown]
  - Depressed mood [Unknown]
